FAERS Safety Report 5495605-3 (Version None)
Quarter: 2007Q4

REPORT INFORMATION
  Report Type: 
  Country: None (occurrence: None)
  Receive Date: 20071018
  Receipt Date: 20070329
  Transmission Date: 20080405
  Serious: Yes (Other)
  Sender: FDA-Public Use
  Company Number: 2006017213

PATIENT
  Age: 46 Year
  Sex: Female
  Weight: 113.4 kg

DRUGS (9)
  1. NEURONTIN [Suspect]
     Indication: DIABETIC NEUROPATHY
     Dosage: 600 MG (300 MG, 2 IN 1 D)
  2. NEURONTIN [Suspect]
     Indication: FIBROMYALGIA
     Dosage: 600 MG (300 MG, 2 IN 1 D)
  3. NEURONTIN [Suspect]
     Indication: PAIN
     Dosage: 600 MG (300 MG, 2 IN 1 D)
  4. NEURONTIN [Suspect]
     Indication: SLEEP DISORDER
     Dosage: 600 MG (300 MG, 2 IN 1 D)
  5. ALL OTHER THERAPEUTIC PRODUCTS [Suspect]
  6. ULTRAM [Concomitant]
  7. EFFEXOR [Concomitant]
  8. VIOXX [Concomitant]
  9. LOTREL [Concomitant]

REACTIONS (2)
  - DRUG INEFFECTIVE [None]
  - SUICIDE ATTEMPT [None]
